FAERS Safety Report 5840958-7 (Version None)
Quarter: 2008Q3

REPORT INFORMATION
  Report Type: 
  Country: None (occurrence: None)
  Receive Date: 20080731
  Receipt Date: 20080429
  Transmission Date: 20090109
  Serious: Yes (Hospitalization)
  Sender: FDA-Public Use
  Company Number: US200804001306

PATIENT
  Age: 59 Year
  Sex: Male
  Weight: 90.7 kg

DRUGS (10)
  1. BYETTA [Suspect]
     Indication: DIABETES MELLITUS
     Dosage: 5 UG, 2/D; 10 UG, 2/D, SUBCUTANEOUS
     Route: 058
     Dates: start: 20070501
  2. EXENATIDE 10MCG PEN, DISPOSABLE DEVICE (EXENATIDE PEN (10MCG)) PEN,DIS [Concomitant]
  3. EXENATIDE 5MCG PEN, DISPOSABLE DEVICE (EXENATIDE PEN (5MCG)) PEN,DISPO [Concomitant]
  4. HYDROCHLOROTHIAZIDE [Concomitant]
  5. NIACIN [Concomitant]
  6. METFORMIN HCL [Concomitant]
  7. ZOCOR [Concomitant]
  8. ATENOLOL [Concomitant]
  9. LISINOPRIL [Concomitant]
  10. ASPIRIN [Concomitant]

REACTIONS (5)
  - DEHYDRATION [None]
  - HYPOPHAGIA [None]
  - RENAL FAILURE ACUTE [None]
  - URINARY TRACT INFECTION [None]
  - VOMITING [None]
